FAERS Safety Report 8971437 (Version 1)
Quarter: 2012Q4

REPORT INFORMATION
  Report Type: 
  Country: MX (occurrence: MX)
  Receive Date: 20121218
  Receipt Date: 20121218
  Transmission Date: 20130627
  Serious: Yes (Death)
  Sender: FDA-Public Use
  Company Number: PHHY2012MX116172

PATIENT
  Age: 72 Year
  Sex: Female

DRUGS (4)
  1. CO-DIOVAN [Suspect]
     Indication: HYPERTENSION
     Dosage: 1 DF (160 mg vals and 12.5 mg hydro), daily
     Route: 048
     Dates: start: 200902
  2. TARKA [Concomitant]
     Dosage: 1 DF, daily
  3. LASILACTONE [Concomitant]
     Dosage: 1 DF, daily
  4. ZACTOS [Concomitant]
     Dosage: 1 DF, daily

REACTIONS (1)
  - Infarction [Fatal]
